FAERS Safety Report 19276455 (Version 3)
Quarter: 2021Q4

REPORT INFORMATION
  Report Type: Spontaneous
  Country: FR (occurrence: FR)
  Receive Date: 20210520
  Receipt Date: 20211027
  Transmission Date: 20220303
  Serious: Yes (Hospitalization, Other)
  Sender: FDA-Public Use
  Company Number: FR-BAUSCH-BL-2021-015935

PATIENT
  Age: 70 Year
  Sex: Male

DRUGS (9)
  1. FUROSEMIDE [Interacting]
     Active Substance: FUROSEMIDE
     Indication: Sinus node dysfunction
     Dosage: 40 MILLIGRAM
     Route: 048
  2. RAMIPRIL [Interacting]
     Active Substance: RAMIPRIL
     Indication: Sinus node dysfunction
     Dosage: 5 MILLIGRAM
     Route: 048
  3. ATENOLOL [Interacting]
     Active Substance: ATENOLOL
     Indication: Hypertonia
     Dosage: 1 DOSAGE FORM, ONCE A DAY
     Route: 047
  4. ATENOLOL [Interacting]
     Active Substance: ATENOLOL
     Indication: Open angle glaucoma
  5. FLECAINIDE [Interacting]
     Active Substance: FLECAINIDE
     Indication: Sinus node dysfunction
     Dosage: UNK
     Route: 048
  6. RILMENIDINE PHOSPHATE [Interacting]
     Active Substance: RILMENIDINE PHOSPHATE
     Indication: Sinus node dysfunction
     Dosage: UNK
     Route: 048
  7. KARDEGIC [Interacting]
     Active Substance: ASPIRIN DL-LYSINE
     Indication: Sinus node dysfunction
     Dosage: 300 MILLIGRAM
     Route: 048
  8. RAMIPRIL [Interacting]
     Active Substance: RAMIPRIL
     Indication: Sinus node dysfunction
     Dosage: 5 MILLIGRAM
     Route: 048
  9. VERAPAMIL [Suspect]
     Active Substance: VERAPAMIL HYDROCHLORIDE
     Indication: Supraventricular tachycardia
     Dosage: 240 MILLIGRAM
     Route: 065

REACTIONS (4)
  - Cardiogenic shock [Recovered/Resolved]
  - Bradycardia [Unknown]
  - Drug interaction [Unknown]
  - Malaise [Unknown]

NARRATIVE: CASE EVENT DATE: 20080101
